FAERS Safety Report 20837171 (Version 4)
Quarter: 2022Q3

REPORT INFORMATION
  Report Type: Report from Study
  Country: US (occurrence: US)
  Receive Date: 20220517
  Receipt Date: 20220905
  Transmission Date: 20221027
  Serious: Yes (Hospitalization, Other)
  Sender: FDA-Public Use
  Company Number: US-ABBVIE-22K-163-4396346-00

PATIENT
  Sex: Male

DRUGS (3)
  1. IMBRUVICA [Suspect]
     Active Substance: IBRUTINIB
     Indication: Chronic lymphocytic leukaemia
     Route: 048
     Dates: start: 202105
  2. INSULIN NOS [Suspect]
     Active Substance: INSULIN NOS
     Indication: Product used for unknown indication
  3. INSULIN NOS [Suspect]
     Active Substance: INSULIN NOS

REACTIONS (8)
  - Cardiac disorder [Unknown]
  - Urinary retention [Unknown]
  - Urinary tract infection [Not Recovered/Not Resolved]
  - Precancerous condition [Unknown]
  - Chest pain [Unknown]
  - Abdominal pain upper [Unknown]
  - Back pain [Unknown]
  - Blood iron decreased [Not Recovered/Not Resolved]
